FAERS Safety Report 15673733 (Version 2)
Quarter: 2019Q1

REPORT INFORMATION
  Report Type: Spontaneous
  Country: US (occurrence: US)
  Receive Date: 20181129
  Receipt Date: 20190125
  Transmission Date: 20190417
  Serious: Yes (Hospitalization, Other)
  Sender: FDA-Public Use
  Company Number: US-PFIZER INC-2018383032

PATIENT
  Age: 69 Year
  Sex: Female
  Weight: 119.7 kg

DRUGS (1)
  1. TIKOSYN [Suspect]
     Active Substance: DOFETILIDE
     Indication: ATRIAL FIBRILLATION
     Dosage: 250 UG, 2X/DAY (1 CAPSULE, EVERY 12 HOURS)
     Route: 048

REACTIONS (2)
  - Product use in unapproved indication [Unknown]
  - Arrhythmia [Unknown]
